FAERS Safety Report 14750667 (Version 1)
Quarter: 2018Q2

REPORT INFORMATION
  Report Type: Spontaneous
  Country: US (occurrence: US)
  Receive Date: 20180406
  Receipt Date: 20180406
  Transmission Date: 20180711
  Serious: Yes (Hospitalization)
  Sender: FDA-Public Use
  Company Number: None

PATIENT
  Age: 73 Year
  Sex: Female

DRUGS (22)
  1. PLAQUENIL [Concomitant]
     Active Substance: HYDROXYCHLOROQUINE SULFATE
     Dates: start: 20071121
  2. TENORMIN [Concomitant]
     Active Substance: ATENOLOL
  3. COUMADIN [Concomitant]
     Active Substance: WARFARIN SODIUM
  4. HYDROXYCHLOR [Concomitant]
     Active Substance: HYDROXYCHLOROQUINE
  5. LEVOTHYROXIN [Concomitant]
     Active Substance: LEVOTHYROXINE
  6. RHEUMATREX [Concomitant]
     Active Substance: METHOTREXATE SODIUM
     Dates: start: 20071121
  7. TRAMADOL. [Concomitant]
     Active Substance: TRAMADOL
     Dates: start: 20180405
  8. ATENOLOL. [Concomitant]
     Active Substance: ATENOLOL
     Dates: start: 20090420
  9. CELEBREX [Concomitant]
     Active Substance: CELECOXIB
     Dates: start: 20071121
  10. CELECOXIB. [Concomitant]
     Active Substance: CELECOXIB
     Dates: start: 20170627
  11. PREDNISONE. [Concomitant]
     Active Substance: PREDNISONE
  12. SIMVASTATIN. [Concomitant]
     Active Substance: SIMVASTATIN
     Dates: start: 20090407
  13. HUMIRA [Suspect]
     Active Substance: ADALIMUMAB
     Indication: RHEUMATOID ARTHRITIS
     Route: 058
     Dates: start: 20071128
  14. ALLOPURINOL. [Concomitant]
     Active Substance: ALLOPURINOL
     Dates: start: 20110320
  15. FOLIC ACID. [Concomitant]
     Active Substance: FOLIC ACID
  16. TYLENOL [Concomitant]
     Active Substance: ACETAMINOPHEN
     Dates: start: 20071121
  17. ALPRAZOLAM. [Concomitant]
     Active Substance: ALPRAZOLAM
     Dates: start: 20180402
  18. BD SHARPS [Concomitant]
     Dates: start: 20110309
  19. DYAZIDE [Concomitant]
     Active Substance: HYDROCHLOROTHIAZIDE\TRIAMTERENE
  20. TRIAMT/HCTZ [Concomitant]
     Active Substance: HYDROCHLOROTHIAZIDE\TRIAMTERENE
     Dates: start: 20090407
  21. WARFARIN [Concomitant]
     Active Substance: WARFARIN
     Dates: start: 20171106
  22. ZOCOR [Concomitant]
     Active Substance: SIMVASTATIN
     Dates: start: 20071121

REACTIONS (2)
  - Spinal fusion surgery [None]
  - Shoulder arthroplasty [None]
